FAERS Safety Report 4422333-5 (Version None)
Quarter: 2004Q3

REPORT INFORMATION
  Report Type: 
  Country: None (occurrence: None)
  Receive Date: 20040810
  Receipt Date: 20040804
  Transmission Date: 20050211
  Serious: Yes (Hospitalization)
  Sender: FDA-Public Use
  Company Number: FR-GLAXOSMITHKLINE-B0341505A

PATIENT
  Age: 57 Year
  Sex: Female

DRUGS (1)
  1. AUGMENTIN '250' [Suspect]
     Route: 048
     Dates: start: 20020605, end: 20020606

REACTIONS (3)
  - ANGIONEUROTIC OEDEMA [None]
  - GENERALISED OEDEMA [None]
  - PAINFUL RESPIRATION [None]
